FAERS Safety Report 7473290-9 (Version None)
Quarter: 2011Q2

REPORT INFORMATION
  Report Type: 
  Country: None (occurrence: None)
  Receive Date: 20110511
  Receipt Date: 20110502
  Transmission Date: 20111010
  Serious: Yes (Death)
  Sender: FDA-Public Use
  Company Number: US-JNJFOC-20110501730

PATIENT
  Age: 2 Year
  Sex: Male

DRUGS (2)
  1. CHILDREN'S TYLENOL SUSPENSION [Suspect]
     Route: 065
  2. CHILDREN'S TYLENOL SUSPENSION [Suspect]
     Indication: PRODUCT USED FOR UNKNOWN INDICATION
     Route: 065

REACTIONS (3)
  - PRODUCT QUALITY ISSUE [None]
  - CONVULSION [None]
  - TOXICITY TO VARIOUS AGENTS [None]
